FAERS Safety Report 9144791 (Version 1)
Quarter: 2013Q1

REPORT INFORMATION
  Report Type: Spontaneous
  Country: CN (occurrence: CN)
  Receive Date: 20130306
  Receipt Date: 20130306
  Transmission Date: 20140127
  Serious: Yes (Other)
  Sender: FDA-Public Use
  Company Number: PHHY2012CN127883

PATIENT
  Age: 26 Year
  Sex: Female
  Weight: 50 kg

DRUGS (7)
  1. TEGRETOL [Suspect]
     Indication: EPILEPSY
     Dosage: UNK UKN, UNK
  2. TEGRETOL [Suspect]
     Dosage: 1 DF, BID
     Route: 048
     Dates: start: 20090406, end: 20090406
  3. VALPROATE SODIUM [Suspect]
  4. CLONAZEPAM [Suspect]
  5. PHENYTOIN [Suspect]
  6. PHENOBARBITAL [Suspect]
  7. LAMOTRIGINE [Suspect]

REACTIONS (15)
  - Rash [Recovering/Resolving]
  - Pruritus [Recovering/Resolving]
  - Convulsion [Unknown]
  - Hepatitis B virus test positive [Unknown]
  - Hepatitis C virus test positive [Unknown]
  - Flushing [Unknown]
  - Swelling [Unknown]
  - Erythema [Unknown]
  - Macule [Unknown]
  - Scratch [Unknown]
  - Dry skin [Unknown]
  - Dandruff [Unknown]
  - Petechiae [Unknown]
  - Blood alkaline phosphatase increased [Unknown]
  - Aspartate aminotransferase increased [Unknown]
